FAERS Safety Report 4625017-3 (Version None)
Quarter: 2005Q1

REPORT INFORMATION
  Report Type: 
  Country: None (occurrence: None)
  Receive Date: 20050330
  Receipt Date: 20050330
  Transmission Date: 20050727
  Serious: Yes (Life-Threatening, Hospitalization)
  Sender: FDA-Public Use
  Company Number: None

PATIENT
  Age: 80 Year
  Sex: Female

DRUGS (1)
  1. POTASSIUM CHLORIDE [Suspect]
     Dosage: 80 MEQ ORAL
     Route: 048

REACTIONS (3)
  - BLOOD POTASSIUM INCREASED [None]
  - CARDIO-RESPIRATORY ARREST [None]
  - MEDICATION ERROR [None]
